FAERS Safety Report 5200405-5 (Version None)
Quarter: 2006Q4

REPORT INFORMATION
  Report Type: 
  Country: None (occurrence: None)
  Receive Date: 20061016
  Receipt Date: 20060710
  Transmission Date: 20070319
  Serious: No
  Sender: FDA-Public Use
  Company Number: 2006SP002768

PATIENT
  Age: 48 Year
  Sex: Male
  Weight: 86.1834 kg

DRUGS (4)
  1. LUNESTA [Suspect]
     Indication: INSOMNIA
     Dosage: 3 MG; ORAL
     Route: 048
     Dates: start: 20060101, end: 20060101
  2. AMBIEN [Concomitant]
  3. PROZAC [Concomitant]
  4. ATIVAN [Concomitant]

REACTIONS (1)
  - DYSGEUSIA [None]
